FAERS Safety Report 9372064 (Version 1)
Quarter: 2013Q2

REPORT INFORMATION
  Report Type: Spontaneous
  Country: US (occurrence: US)
  Receive Date: 20130627
  Receipt Date: 20130627
  Transmission Date: 20140414
  Serious: Yes (Other)
  Sender: FDA-Public Use
  Company Number: US-BAYER-2013-075309

PATIENT
  Age: 66 Year
  Sex: Male
  Weight: 122.45 kg

DRUGS (8)
  1. BAYER ASPIRIN REGIMEN ADULT LOW STRENGTH [Suspect]
     Indication: ISCHAEMIC HEART DISEASE PROPHYLAXIS
     Dosage: 1 DF, QD
     Route: 048
     Dates: start: 2003
  2. PROTONIX [Concomitant]
  3. NITROGLYCERIN [Concomitant]
  4. COQ10 [Concomitant]
  5. GARLIC [Concomitant]
  6. IRON [Concomitant]
  7. PANTOPRAZOLE [Concomitant]
  8. SELENIUM [Concomitant]

REACTIONS (2)
  - Oesophageal carcinoma [Recovered/Resolved]
  - Gastric ulcer haemorrhage [Recovered/Resolved]
